FAERS Safety Report 9708472 (Version 4)
Quarter: 2013Q4

REPORT INFORMATION
  Report Type: Spontaneous
  Country: JP (occurrence: JP)
  Receive Date: 20131125
  Receipt Date: 20131227
  Transmission Date: 20140711
  Serious: Yes (Life-Threatening, Hospitalization)
  Sender: FDA-Public Use
  Company Number: JP-TEVA-444406ISR

PATIENT
  Age: 68 Year
  Sex: Female

DRUGS (2)
  1. GEMCITABINE [Suspect]
     Indication: TRANSITIONAL CELL CARCINOMA URETHRA
     Dosage: 1000 MG/M2 DAILY; ON DAYS 1 AND 8
     Route: 065
     Dates: start: 201108
  2. CISPLATIN [Suspect]
     Indication: TRANSITIONAL CELL CARCINOMA URETHRA
     Dosage: 100 MG/M2 DAILY; ON DAY 2
     Route: 065
     Dates: start: 201108

REACTIONS (3)
  - Cardio-respiratory arrest [Recovered/Resolved]
  - Pulmonary embolism [Recovered/Resolved]
  - Deep vein thrombosis [Not Recovered/Not Resolved]
